FAERS Safety Report 6974615-0 (Version None)
Quarter: 2010Q3

REPORT INFORMATION
  Report Type: 
  Country: None (occurrence: None)
  Receive Date: 20100909
  Receipt Date: 20100909
  Transmission Date: 20110219
  Serious: Yes (Hospitalization)
  Sender: FDA-Public Use
  Company Number: None

PATIENT
  Age: 68 Year
  Sex: Female
  Weight: 86.1834 kg

DRUGS (1)
  1. VERAMYST [Suspect]
     Indication: NASAL DRYNESS
     Dosage: 2 SPRAY DAILY NASAL
     Route: 045
     Dates: start: 20100602, end: 20100903

REACTIONS (1)
  - EPISTAXIS [None]
